FAERS Safety Report 4728327-4 (Version None)
Quarter: 2005Q3

REPORT INFORMATION
  Report Type: 
  Country: None (occurrence: None)
  Receive Date: 20050727
  Receipt Date: 20050629
  Transmission Date: 20060218
  Serious: Yes (Hospitalization)
  Sender: FDA-Public Use
  Company Number: 2005095109

PATIENT
  Age: 63 Year
  Sex: Female

DRUGS (2)
  1. SULFASALAZINE [Suspect]
     Indication: RHEUMATOID ARTHRITIS
  2. PREDNISONE [Concomitant]

REACTIONS (16)
  - BLOOD AMYLASE INCREASED [None]
  - BRONCHITIS [None]
  - CARDIOGENIC SHOCK [None]
  - CHOLESTASIS [None]
  - CYTOLYTIC HEPATITIS [None]
  - DRUG HYPERSENSITIVITY [None]
  - DRUG RASH WITH EOSINOPHILIA AND SYSTEMIC SYMPTOMS [None]
  - GENERAL PHYSICAL HEALTH DETERIORATION [None]
  - HEPATOSPLENOMEGALY [None]
  - HUMAN HERPES VIRUS 6 SEROLOGY POSITIVE [None]
  - HYPERTHERMIA [None]
  - MYALGIA [None]
  - RHINITIS [None]
  - ROSEOLA [None]
  - SEROCONVERSION TEST POSITIVE [None]
  - VIRAL INFECTION [None]
